FAERS Safety Report 11882111 (Version 1)
Quarter: 2015Q4

REPORT INFORMATION
  Report Type: Spontaneous
  Country: IT (occurrence: IT)
  Receive Date: 20151231
  Receipt Date: 20151231
  Transmission Date: 20160305
  Serious: Yes (Disabling)
  Sender: FDA-Public Use
  Company Number: IT-UCBSA-2015043205

PATIENT
  Age: 39 Year
  Sex: Male

DRUGS (5)
  1. RASAGILINE [Concomitant]
     Active Substance: RASAGILINE
     Indication: PARKINSON^S DISEASE
     Dosage: 1MG PER DAY
  2. ROTIGOTINE [Suspect]
     Active Substance: ROTIGOTINE
     Indication: PARKINSON^S DISEASE
     Dosage: UNKNOWN DOSE
  3. L DOPA [Suspect]
     Active Substance: LEVODOPA
     Indication: PARKINSON^S DISEASE
     Dosage: 400MG/DAY
  4. CARBIDOPA, LEVODOPA AND ENTACAPONE [Concomitant]
     Active Substance: CARBIDOPA\ENTACAPONE\LEVODOPA
     Indication: PARKINSON^S DISEASE
     Dosage: 50/12.5/200MG 5 TIMES PER DAY
  5. ROTIGOTINE [Suspect]
     Active Substance: ROTIGOTINE
     Dosage: 6MG PER DAY

REACTIONS (6)
  - Hallucination, visual [Recovered/Resolved]
  - Aggression [Recovered/Resolved]
  - Motor dysfunction [Not Recovered/Not Resolved]
  - Delusion [Recovered/Resolved]
  - Depressed mood [Recovered/Resolved]
  - Sleep disorder [Recovered/Resolved]
